FAERS Safety Report 4980347-0 (Version None)
Quarter: 2006Q2

REPORT INFORMATION
  Report Type: 
  Country: None (occurrence: None)
  Receive Date: 20060424
  Receipt Date: 20060413
  Transmission Date: 20061013
  Serious: Yes (Other)
  Sender: FDA-Public Use
  Company Number: PHEH2006US04913

PATIENT
  Sex: Male

DRUGS (1)
  1. LOTREL [Suspect]
     Indication: HYPERTENSION
     Dosage: 10/20 MG,QD
     Route: 048

REACTIONS (3)
  - BLOOD CREATININE INCREASED [None]
  - PROTEIN URINE [None]
  - RENAL IMPAIRMENT [None]
